FAERS Safety Report 9263885 (Version 2)
Quarter: 2013Q2

REPORT INFORMATION
  Report Type: Spontaneous
  Country: US (occurrence: US)
  Receive Date: 20130430
  Receipt Date: 20130610
  Transmission Date: 20140414
  Serious: Yes (Death, Hospitalization)
  Sender: FDA-Public Use
  Company Number: US-GLAXOSMITHKLINE-A1021719A

PATIENT
  Age: 31 Year
  Sex: Male

DRUGS (5)
  1. BENLYSTA [Suspect]
     Indication: SYSTEMIC LUPUS ERYTHEMATOSUS
     Dosage: 10MGK EVERY 28 DAYS
     Route: 042
     Dates: start: 201206
  2. PREDNISONE [Concomitant]
  3. FOLIC ACID [Concomitant]
  4. CELL CEPT [Concomitant]
  5. METHOTREXATE [Concomitant]

REACTIONS (1)
  - Systemic mycosis [Fatal]
